FAERS Safety Report 8534164-5 (Version None)
Quarter: 2012Q3

REPORT INFORMATION
  Report Type: 
  Country: None (occurrence: None)
  Receive Date: 20120724
  Receipt Date: 20120712
  Transmission Date: 20120928
  Serious: No
  Sender: FDA-Public Use
  Company Number: BR-ACTELION-A-CH2012-68573

PATIENT
  Sex: Female

DRUGS (1)
  1. BOSENTAN [Suspect]
     Indication: MATERNAL EXPOSURE DURING PREGNANCY
     Dosage: 125 MG, BID
     Route: 064
     Dates: start: 20100625, end: 20111227

REACTIONS (2)
  - PREMATURE DELIVERY [None]
  - NORMAL NEWBORN [None]
